FAERS Safety Report 20663094 (Version 1)
Quarter: 2022Q2

REPORT INFORMATION
  Report Type: Spontaneous
  Country: FR (occurrence: FR)
  Receive Date: 20220401
  Receipt Date: 20220401
  Transmission Date: 20220721
  Serious: Yes (Death)
  Sender: FDA-Public Use
  Company Number: None

PATIENT
  Age: 52 Year
  Sex: Female
  Weight: 75 kg

DRUGS (5)
  1. FLUOROURACIL [Suspect]
     Active Substance: FLUOROURACIL
     Indication: Adenocarcinoma of colon
     Dosage: 50 MG/ML
     Route: 041
     Dates: start: 20211115, end: 20211227
  2. OXALIPLATIN [Suspect]
     Active Substance: OXALIPLATIN
     Indication: Adenocarcinoma of colon
     Dosage: 5 MG/ML
     Route: 041
     Dates: start: 20211115, end: 20211227
  3. KYTRIL [Suspect]
     Active Substance: GRANISETRON HYDROCHLORIDE
     Indication: Adenocarcinoma of colon
     Dosage: 3 MG/3 ML
     Route: 041
     Dates: start: 20211115, end: 20211227
  4. LEUCOVORIN CALCIUM [Suspect]
     Active Substance: LEUCOVORIN CALCIUM
     Indication: Adenocarcinoma of colon
     Dosage: 10 MG/ML
     Route: 041
     Dates: start: 20211115, end: 20211227
  5. METHYLPREDNISOLONE [Suspect]
     Active Substance: METHYLPREDNISOLONE
     Indication: Adenocarcinoma of colon
     Dosage: 40 MG, (IM-IV)
     Route: 041
     Dates: start: 20211115, end: 20211227

REACTIONS (2)
  - Hypoxia [Fatal]
  - Cardio-respiratory arrest [Fatal]

NARRATIVE: CASE EVENT DATE: 20211227
